FAERS Safety Report 20167091 (Version 1)
Quarter: 2021Q4

REPORT INFORMATION
  Report Type: Spontaneous
  Country: DE (occurrence: DE)
  Receive Date: 20211209
  Receipt Date: 20211209
  Transmission Date: 20220303
  Serious: Yes (Other)
  Sender: FDA-Public Use
  Company Number: DE-NOVARTISPH-NVSC2021DE280583

PATIENT
  Age: 2 Year
  Sex: Male

DRUGS (2)
  1. TRAMETINIB [Suspect]
     Active Substance: TRAMETINIB
     Indication: Malignant melanoma
     Dosage: 0.035 MG/KG, PER DOSE QD
     Route: 048
  2. AZACITIDINE [Suspect]
     Active Substance: AZACITIDINE
     Indication: Malignant melanoma
     Dosage: 75 MG/M2, PER DOSE QD FOR 7 CONSECUTIVE DAYS IN 28-DAY CYCLES
     Route: 042

REACTIONS (5)
  - Malignant melanoma [Unknown]
  - Malignant neoplasm progression [Unknown]
  - Blood creatine phosphokinase increased [Unknown]
  - Product use issue [Unknown]
  - Product use in unapproved indication [Unknown]
